FAERS Safety Report 18782406 (Version 1)
Quarter: 2021Q1

REPORT INFORMATION
  Report Type: Spontaneous
  Country: DE (occurrence: DE)
  Receive Date: 20210125
  Receipt Date: 20210125
  Transmission Date: 20210419
  Serious: Yes (Other)
  Sender: FDA-Public Use
  Company Number: DE-TEVA-2021-DE-1871594

PATIENT
  Sex: Female

DRUGS (2)
  1. DEXA?RATIOPHARM [DEXAMETHASONE] [Suspect]
     Active Substance: DEXAMETHASONE
     Indication: PAIN
     Dosage: ONCE ON 15?JAN?2021 IN THE LATE AFTERNOON
     Route: 030
     Dates: start: 20210115, end: 20210115
  2. DICLOFENAC?RATIOPHARM 75 MG/2 ML INJEKTIONSLOESUNG [Suspect]
     Active Substance: DICLOFENAC
     Indication: PAIN
     Dosage: ONCE ON 15?JAN?2021 IN THE LATE AFTERNOON
     Route: 030
     Dates: start: 20210115, end: 20210115

REACTIONS (7)
  - Erythema [Recovered/Resolved]
  - Asthenia [Recovering/Resolving]
  - Blood pressure decreased [Recovered/Resolved]
  - Presyncope [Recovering/Resolving]
  - Fear of death [Recovered/Resolved]
  - Pruritus [Recovered/Resolved]
  - Ocular hyperaemia [Recovered/Resolved]
